FAERS Safety Report 15902836 (Version 1)
Quarter: 2019Q1

REPORT INFORMATION
  Report Type: Spontaneous
  Country: IT (occurrence: IT)
  Receive Date: 20190202
  Receipt Date: 20190202
  Transmission Date: 20190417
  Serious: Yes (Other)
  Sender: FDA-Public Use
  Company Number: IT-AUROBINDO-AUR-APL-2019-004708

PATIENT

DRUGS (3)
  1. ALIMTA [Concomitant]
     Active Substance: PEMETREXED DISODIUM
     Indication: LUNG NEOPLASM
     Dosage: 500 MILLIGRAM/SQ. METER
     Route: 042
     Dates: start: 20180518
  2. ZOLEDRONIC ACID SOLUTION FOR INFUSION [Suspect]
     Active Substance: ZOLEDRONIC ACID
     Indication: METASTASES TO BONE
     Dosage: 4 MILLIGRAM, CYCLICAL
     Route: 042
     Dates: start: 20180601
  3. CISPLATIN. [Concomitant]
     Active Substance: CISPLATIN
     Indication: LUNG NEOPLASM
     Dosage: 75 MILLIGRAM/SQ. METER
     Route: 042
     Dates: start: 20180518, end: 20180921

REACTIONS (2)
  - Eyelid oedema [Recovering/Resolving]
  - Face oedema [Recovering/Resolving]

NARRATIVE: CASE EVENT DATE: 20181108
